FAERS Safety Report 12726825 (Version 1)
Quarter: 2016Q3

REPORT INFORMATION
  Report Type: Spontaneous
  Country: BR (occurrence: BR)
  Receive Date: 20160908
  Receipt Date: 20160908
  Transmission Date: 20161109
  Serious: Yes (Other)
  Sender: FDA-Public Use
  Company Number: BR-009507513-1510BRA006845

PATIENT
  Sex: Female
  Weight: 70 kg

DRUGS (5)
  1. ALPHAGAN P [Concomitant]
     Active Substance: BRIMONIDINE TARTRATE
     Indication: GLAUCOMA
     Dosage: 4 DROPS (1 DROP IN EACH EYE/TWICE DAILY)
     Route: 047
     Dates: start: 2006
  2. JANUMET [Suspect]
     Active Substance: METFORMIN HYDROCHLORIDE\SITAGLIPTIN PHOSPHATE
     Dosage: UNK
     Dates: start: 201608
  3. XALACOM [Concomitant]
     Active Substance: LATANOPROST\TIMOLOL MALEATE
     Indication: GLAUCOMA
     Dosage: 2 DROPS (1 DROP IN EACH EYE/DAILY)
     Route: 047
     Dates: start: 2006
  4. AZOPT [Concomitant]
     Active Substance: BRINZOLAMIDE
     Indication: GLAUCOMA
     Dosage: 4 DROPS (1 DROP IN EACH EYE/ TWICE DAILY)
     Route: 047
     Dates: start: 2006
  5. JANUMET [Suspect]
     Active Substance: METFORMIN HYDROCHLORIDE\SITAGLIPTIN PHOSPHATE
     Indication: DIABETES MELLITUS
     Dosage: 1 TABLET, ONCE A DAY
     Route: 048
     Dates: start: 2006, end: 201608

REACTIONS (5)
  - Incorrect dose administered [Unknown]
  - Drug dispensing error [Unknown]
  - Hypertension [Unknown]
  - Hip arthroplasty [Unknown]
  - Hypoaesthesia [Not Recovered/Not Resolved]

NARRATIVE: CASE EVENT DATE: 2011
